FAERS Safety Report 7945465-3 (Version None)
Quarter: 2011Q4

REPORT INFORMATION
  Report Type: 
  Country: None (occurrence: None)
  Receive Date: 20111129
  Receipt Date: 20111123
  Transmission Date: 20120403
  Serious: Yes (Other)
  Sender: FDA-Public Use
  Company Number: US-BAYER-2011-113915

PATIENT
  Age: 37 Year
  Sex: Male
  Weight: 66 kg

DRUGS (3)
  1. ONE-A-DAY MEN'S HEALTH [Suspect]
     Dosage: 1 DF, QD
     Route: 048
     Dates: start: 20090101
  2. PROVENTIL [Concomitant]
  3. CLARINEX [Concomitant]

REACTIONS (3)
  - DYSPNOEA [None]
  - ABDOMINAL PAIN UPPER [None]
  - ABDOMINAL PAIN [None]
